FAERS Safety Report 6252082-2 (Version None)
Quarter: 2009Q2

REPORT INFORMATION
  Report Type: 
  Country: None (occurrence: None)
  Receive Date: 20090630
  Receipt Date: 20050708
  Transmission Date: 20091009
  Serious: Yes (Death)
  Sender: FDA-Public Use
  Company Number: US-ROCHE-638848

PATIENT
  Sex: Male

DRUGS (6)
  1. ENFUVIRTIDE [Suspect]
     Indication: HIV INFECTION
     Route: 065
     Dates: start: 20050624, end: 20050708
  2. NORVIR [Concomitant]
     Dates: start: 20050607, end: 20050708
  3. VIDEX EC [Concomitant]
     Dosage: FREQUENCY: DAILY (QD)
     Dates: start: 20050607, end: 20050708
  4. VIREAD [Concomitant]
     Dosage: FREQUENCY: DAILY (QD)
     Dates: start: 20050607, end: 20050708
  5. FLUCONAZOLE [Concomitant]
     Dosage: FREQUENCY: DAILY (QD)
     Dates: start: 20050607, end: 20050624
  6. MEPRON [Concomitant]
     Dosage: FREQUENCY: DAILY (QD)
     Dates: start: 20050607, end: 20050624

REACTIONS (1)
  - RENAL FAILURE ACUTE [None]
